FAERS Safety Report 6192798-X (Version None)
Quarter: 2009Q2

REPORT INFORMATION
  Report Type: 
  Country: None (occurrence: None)
  Receive Date: 20090518
  Receipt Date: 20090511
  Transmission Date: 20091009
  Serious: Yes (Hospitalization)
  Sender: FDA-Public Use
  Company Number: DE-BRISTOL-MYERS SQUIBB COMPANY-14625404

PATIENT
  Age: 64 Year
  Sex: Female
  Weight: 64 kg

DRUGS (6)
  1. METFORMIN HCL [Suspect]
     Indication: TYPE 2 DIABETES MELLITUS
     Route: 048
     Dates: end: 20090421
  2. BYETTA [Suspect]
     Indication: TYPE 2 DIABETES MELLITUS
     Dosage: FORM = INJ
     Route: 058
     Dates: start: 20090303, end: 20090420
  3. FLUVASTATIN [Suspect]
     Indication: HYPERCHOLESTEROLAEMIA
     Dosage: FORM = TABS
     Route: 048
     Dates: start: 20090303, end: 20090421
  4. BISOPROLOL [Concomitant]
     Indication: HYPERTENSION
     Dosage: FORM = TABS STRENGTH 2.5MG
     Route: 048
  5. CARMEN [Concomitant]
     Indication: HYPERTENSION
     Dosage: FORM = TABS STRENGTH 10MG
     Route: 048
  6. HYDROCHLOROTHIAZIDE [Concomitant]
     Indication: HYPERTENSION
     Dosage: FORM = TABS STRENGTH 25MG
     Route: 048
     Dates: start: 20090303

REACTIONS (2)
  - GAMMA-GLUTAMYLTRANSFERASE INCREASED [None]
  - TRANSAMINASES INCREASED [None]
